FAERS Safety Report 5037525-4 (Version None)
Quarter: 2006Q2

REPORT INFORMATION
  Report Type: 
  Country: None (occurrence: None)
  Receive Date: 20060628
  Receipt Date: 20060616
  Transmission Date: 20061013
  Serious: Yes (Hospitalization)
  Sender: FDA-Public Use
  Company Number: NL-BRISTOL-MYERS SQUIBB COMPANY-13414990

PATIENT
  Age: 45 Year
  Sex: Male

DRUGS (12)
  1. CARBOPLATIN [Suspect]
     Indication: NON-SMALL CELL LUNG CANCER
     Route: 042
     Dates: start: 20060418
  2. DOCETAXEL [Suspect]
     Indication: NON-SMALL CELL LUNG CANCER
     Route: 042
     Dates: start: 20060418
  3. BLINDED: CELECOXIB [Suspect]
     Indication: NON-SMALL CELL LUNG CANCER
     Route: 048
     Dates: start: 20060418
  4. BLINDED: PLACEBO [Suspect]
     Indication: NON-SMALL CELL LUNG CANCER
     Route: 048
     Dates: start: 20060418
  5. COLCHICINE [Concomitant]
  6. METFORMIN HYDROCHLORIDE [Concomitant]
  7. ACTRAPID [Concomitant]
  8. NEXIUM [Concomitant]
  9. OXAZEPAM [Concomitant]
  10. AMLODIPINE [Concomitant]
  11. VITAMIN B COMPLEX CAP [Concomitant]
  12. ALLOPURINOL [Concomitant]

REACTIONS (1)
  - EPILEPSY [None]
